FAERS Safety Report 15738069 (Version 6)
Quarter: 2019Q4

REPORT INFORMATION
  Report Type: Spontaneous
  Country: ES (occurrence: ES)
  Receive Date: 20181219
  Receipt Date: 20191105
  Transmission Date: 20200122
  Serious: Yes (Hospitalization, Other)
  Sender: FDA-Public Use
  Company Number: ES-ACCORD-096781

PATIENT
  Age: 74 Year
  Sex: Female

DRUGS (11)
  1. PRAVASTATIN. [Concomitant]
     Active Substance: PRAVASTATIN
     Indication: PRODUCT USED FOR UNKNOWN INDICATION
     Dosage: 20 MG, (0-0-1)
     Dates: start: 20170426
  2. QUETIAPINE. [Suspect]
     Active Substance: QUETIAPINE
     Indication: HALLUCINATION
     Dosage: REGIMEN 1 25 MG, PM,0-0-1
     Route: 048
  3. HYDROCHLOROTHIAZIDE/LOSARTAN POTASSIUM [Concomitant]
     Indication: PRODUCT USED FOR UNKNOWN INDICATION
     Dosage: UNK
     Dates: start: 20170403
  4. AMIODARONE [Concomitant]
     Active Substance: AMIODARONE
     Indication: PRODUCT USED FOR UNKNOWN INDICATION
     Dosage: 0-1-0EXCEPT TH AND SUN
     Dates: start: 20170717
  5. AMLODIPINE [Concomitant]
     Active Substance: AMLODIPINE BESYLATE
     Indication: PRODUCT USED FOR UNKNOWN INDICATION
     Dosage: 5 MG, 1-0-0
     Dates: start: 20170620
  6. BISOPROLOL [Concomitant]
     Active Substance: BISOPROLOL
     Indication: PRODUCT USED FOR UNKNOWN INDICATION
     Dosage: 1-1/2-0
     Dates: start: 20170414
  7. FLUOXETINE [Interacting]
     Active Substance: FLUOXETINE HYDROCHLORIDE
     Indication: DEPRESSION
     Dosage: REGIMEN 1??20 MG 1-0-0
     Dates: start: 201403
  8. RISPERIDONE. [Interacting]
     Active Substance: RISPERIDONE
     Indication: PRODUCT USED FOR UNKNOWN INDICATION
     Dates: start: 20170817
  9. FLUPENTIXOL/MELITRACEN [Suspect]
     Active Substance: FLUPENTIXOL\MELITRACEN
     Indication: PRODUCT USED FOR UNKNOWN INDICATION
     Dates: start: 20170504
  10. LEVETIRACETAM. [Suspect]
     Active Substance: LEVETIRACETAM
     Indication: PRODUCT USED FOR UNKNOWN INDICATION
     Dosage: 500 MG, 1-0-1
     Route: 065
     Dates: start: 201706, end: 201708
  11. PARACETAMOL [Concomitant]
     Active Substance: ACETAMINOPHEN
     Indication: PRODUCT USED FOR UNKNOWN INDICATION
     Dosage: 1 G, (1-1-1)
     Dates: start: 20170418

REACTIONS (9)
  - Weight increased [Unknown]
  - Serotonin syndrome [Unknown]
  - Drug interaction [Unknown]
  - Suicidal ideation [Unknown]
  - Oedema [Unknown]
  - Hyperhidrosis [Unknown]
  - Hyperthermia [Unknown]
  - Tinnitus [Unknown]
  - Oliguria [Unknown]
